FAERS Safety Report 6237485-4 (Version None)
Quarter: 2009Q2

REPORT INFORMATION
  Report Type: 
  Country: None (occurrence: None)
  Receive Date: 20090619
  Receipt Date: 20090127
  Transmission Date: 20091009
  Serious: No
  Sender: FDA-Public Use
  Company Number: US-AMGEN-KDL330563

PATIENT
  Sex: Male
  Weight: 59.9 kg

DRUGS (2)
  1. ARANESP [Suspect]
     Indication: ANAEMIA
     Dates: start: 20070401, end: 20071201
  2. PROCRIT [Suspect]
     Indication: ANAEMIA
     Dates: start: 20061218, end: 20070401

REACTIONS (7)
  - CONFUSIONAL STATE [None]
  - DYSKINESIA [None]
  - FEELING ABNORMAL [None]
  - HYPOKINESIA [None]
  - MOBILITY DECREASED [None]
  - THERAPEUTIC RESPONSE DECREASED [None]
  - WEIGHT DECREASED [None]
